FAERS Safety Report 8326782-4 (Version None)
Quarter: 2012Q2

REPORT INFORMATION
  Report Type: 
  Country: None (occurrence: None)
  Receive Date: 20120501
  Receipt Date: 20120426
  Transmission Date: 20120825
  Serious: Yes (Life-Threatening)
  Sender: FDA-Public Use
  Company Number: PHHY2012DE026776

PATIENT
  Age: 53 Year
  Sex: Female

DRUGS (2)
  1. POSACONAZOLE [Suspect]
  2. CIPROFLOXACIN [Suspect]

REACTIONS (1)
  - LONG QT SYNDROME [None]
